FAERS Safety Report 10062545 (Version 1)
Quarter: 2014Q2

REPORT INFORMATION
  Report Type: Spontaneous
  Country: US (occurrence: US)
  Receive Date: 20140407
  Receipt Date: 20140407
  Transmission Date: 20141212
  Serious: No
  Sender: FDA-Public Use
  Company Number: US-ACTELION-A-NJ2014-96481

PATIENT
  Sex: Female

DRUGS (1)
  1. VALCHLOR [Suspect]
     Indication: ACCIDENTAL EXPOSURE TO PRODUCT
     Route: 061

REACTIONS (3)
  - Accidental exposure to product [Unknown]
  - Rash [Unknown]
  - Exposure via direct contact [Unknown]
